FAERS Safety Report 7711799-0 (Version None)
Quarter: 2011Q3

REPORT INFORMATION
  Report Type: 
  Country: None (occurrence: None)
  Receive Date: 20110822
  Receipt Date: 20110815
  Transmission Date: 20111222
  Serious: Yes (Life-Threatening, Disabling)
  Sender: FDA-Public Use
  Company Number: 2011SP034813

PATIENT
  Age: 66 Year
  Sex: Female

DRUGS (8)
  1. SPIRIVA [Concomitant]
  2. ALBUTEROL SULFATE AUTOHALER [Suspect]
     Indication: DYSPNOEA
     Dates: start: 20110724
  3. SINGULAIR [Concomitant]
  4. VENTOLIN HFA [Concomitant]
  5. DULERA ORAL INHALATION [Suspect]
     Indication: ASTHMA
     Dates: start: 20110810
  6. DULERA ORAL INHALATION [Suspect]
     Indication: EMPHYSEMA
     Dates: start: 20110810
  7. DULERA ORAL INHALATION [Suspect]
     Indication: ASTHMA
     Dates: start: 20110708
  8. DULERA ORAL INHALATION [Suspect]
     Indication: EMPHYSEMA
     Dates: start: 20110708

REACTIONS (4)
  - INSOMNIA [None]
  - DYSPNOEA [None]
  - NO THERAPEUTIC RESPONSE [None]
  - APPARENT LIFE THREATENING EVENT [None]
